FAERS Safety Report 9842702 (Version 1)
Quarter: 2014Q1

REPORT INFORMATION
  Report Type: Spontaneous
  Country: JP (occurrence: JP)
  Receive Date: 20140124
  Receipt Date: 20140124
  Transmission Date: 20141002
  Serious: Yes (Other)
  Sender: FDA-Public Use
  Company Number: JP-PFIZER INC-2014021444

PATIENT
  Sex: Male

DRUGS (1)
  1. LYRICA [Suspect]
     Indication: BACK PAIN
     Dosage: UNK
     Route: 048

REACTIONS (11)
  - Abasia [Unknown]
  - Coordination abnormal [Unknown]
  - Drooling [Unknown]
  - Headache [Unknown]
  - Vision blurred [Unknown]
  - Hallucination [Unknown]
  - Speech disorder [Unknown]
  - Pain in extremity [Unknown]
  - Insomnia [Unknown]
  - Visual acuity reduced [Unknown]
  - Fall [Unknown]
